FAERS Safety Report 5283926-9 (Version None)
Quarter: 2007Q1

REPORT INFORMATION
  Report Type: 
  Country: None (occurrence: None)
  Receive Date: 20070327
  Receipt Date: 20070313
  Transmission Date: 20070707
  Serious: No
  Sender: FDA-Public Use
  Company Number: TPA2007A00578

PATIENT
  Age: 59 Year
  Sex: Male
  Weight: 72.5755 kg

DRUGS (8)
  1. ROZEREM [Suspect]
     Indication: INSOMNIA
     Dosage: SEE IMAGE
     Dates: start: 20070310, end: 20070310
  2. ROZEREM [Suspect]
     Indication: INSOMNIA
     Dosage: SEE IMAGE
     Dates: start: 20070311, end: 20070311
  3. ROZEREM [Suspect]
     Indication: INSOMNIA
     Dosage: SEE IMAGE
     Dates: start: 20070312
  4. BENICAR [Concomitant]
  5. CRESTOR [Concomitant]
  6. ALLOPURINOL [Concomitant]
  7. LOREAZEPAM (LORAZEPAM) [Concomitant]
  8. AMBIEN [Concomitant]

REACTIONS (2)
  - INCORRECT DOSE ADMINISTERED [None]
  - INITIAL INSOMNIA [None]
